FAERS Safety Report 16165658 (Version 4)
Quarter: 2019Q2

REPORT INFORMATION
  Report Type: Spontaneous
  Country: NL (occurrence: NL)
  Receive Date: 20190405
  Receipt Date: 20190428
  Transmission Date: 20190711
  Serious: Yes (Other)
  Sender: FDA-Public Use
  Company Number: PHHY2019NL077424

PATIENT
  Age: 54 Year
  Sex: Male

DRUGS (1)
  1. PREDNISOLONE. [Suspect]
     Active Substance: PREDNISOLONE
     Indication: SJOGREN^S SYNDROME
     Dosage: UNK (RECEIVED FOR MORE THAN 12 YEARS)
     Route: 065

REACTIONS (2)
  - Cutaneous T-cell lymphoma stage I [Unknown]
  - Non-Hodgkin^s lymphoma [Unknown]
